FAERS Safety Report 4639870-0 (Version None)
Quarter: 2005Q2

REPORT INFORMATION
  Report Type: 
  Country: None (occurrence: None)
  Receive Date: 20050418
  Receipt Date: 20050406
  Transmission Date: 20051028
  Serious: Yes (Death)
  Sender: FDA-Public Use
  Company Number: 2005056103

PATIENT
  Age: 22 Year
  Sex: Female

DRUGS (4)
  1. HALCION [Suspect]
     Indication: ILL-DEFINED DISORDER
     Dosage: ORAL
     Route: 048
  2. FLUNITRAZEPAM (FLUNITRAZEPAM) [Concomitant]
  3. NITRAZEPAM [Concomitant]
  4. LEVOMEPROMAZINE MALEATE )LEVOMEPROMAZINE MALEATE) [Concomitant]

REACTIONS (1)
  - DEATH [None]
